FAERS Safety Report 17655374 (Version 1)
Quarter: 2020Q2

REPORT INFORMATION
  Report Type: Report from Study
  Country: ES (occurrence: ES)
  Receive Date: 20200410
  Receipt Date: 20200410
  Transmission Date: 20200713
  Serious: Yes (Life-Threatening, Hospitalization)
  Sender: FDA-Public Use
  Company Number: ES-TEVA-2020-ES-1221479

PATIENT
  Age: 60 Year
  Sex: Male

DRUGS (3)
  1. IBUPROFENO (1769A) [Suspect]
     Active Substance: IBUPROFEN
     Indication: CATARRH
     Dosage: 2.4 GM
     Route: 048
     Dates: start: 20180119, end: 20180129
  2. SINOGAN 25 MG COMPRIMIDOS RECUBIERTOS CON PELICULA, 20 COMPRIMIDOS [Concomitant]
     Active Substance: LEVOMEPROMAZINE
     Indication: SCHIZOPHRENIA
     Dosage: 25 MG
     Route: 048
     Dates: start: 20141211
  3. ZYPREXA 10 MG COMPRIMIDOS RECUBIERTOS, 28 COMPRIMIDOS [Concomitant]
     Indication: SCHIZOPHRENIA
     Dosage: 10 MG
     Route: 048
     Dates: start: 20141211

REACTIONS (1)
  - Upper gastrointestinal haemorrhage [Recovered/Resolved]

NARRATIVE: CASE EVENT DATE: 20180120
